FAERS Safety Report 9253267 (Version 2)
Quarter: 2013Q2

REPORT INFORMATION
  Report Type: Spontaneous
  Country: US (occurrence: US)
  Receive Date: 20130424
  Receipt Date: 20130510
  Transmission Date: 20140414
  Serious: Yes (Other)
  Sender: FDA-Public Use
  Company Number: US-ELI_LILLY_AND_COMPANY-US201304005762

PATIENT
  Age: 68 Year
  Sex: Female

DRUGS (1)
  1. PEMETREXED [Suspect]
     Indication: LUNG ADENOCARCINOMA

REACTIONS (7)
  - Gangrene [Not Recovered/Not Resolved]
  - Raynaud^s phenomenon [Unknown]
  - Gangrene [None]
  - Dry gangrene [None]
  - Peripheral arterial occlusive disease [None]
  - Finger amputation [None]
  - Endothelial dysfunction [None]
